FAERS Safety Report 4553877-3 (Version None)
Quarter: 2005Q1

REPORT INFORMATION
  Report Type: 
  Country: None (occurrence: None)
  Receive Date: 20050113
  Receipt Date: 20050113
  Transmission Date: 20050727
  Serious: Yes (Death)
  Sender: FDA-Public Use
  Company Number: None

PATIENT
  Age: 79 Year
  Sex: Female
  Weight: 57.1532 kg

DRUGS (10)
  1. MEMANTINE [Suspect]
     Dosage: 10 MG PO BID
     Route: 048
     Dates: start: 20040901, end: 20041101
  2. FELODIPINE [Concomitant]
  3. ZANTAC [Concomitant]
  4. DILANTIN [Concomitant]
  5. SEROQUEL [Concomitant]
  6. LISINOPRIL [Concomitant]
  7. ZOLOFT [Concomitant]
  8. ASPIRIN [Concomitant]
  9. ARICEPT [Concomitant]
  10. HYDROCHLOROTHIAZIDE [Concomitant]

REACTIONS (3)
  - ABASIA [None]
  - LETHARGY [None]
  - SUDDEN DEATH [None]
